FAERS Safety Report 17505822 (Version 1)
Quarter: 2020Q1

REPORT INFORMATION
  Report Type: Spontaneous
  Country: US (occurrence: US)
  Receive Date: 20200305
  Receipt Date: 20200305
  Transmission Date: 20200409
  Serious: No
  Sender: FDA-Public Use
  Company Number: US-TARO-2019TAR00661

PATIENT
  Sex: Male
  Weight: 79.37 kg

DRUGS (3)
  1. ENALAPRIL MALEATE TABLETS USP 5 MG [Suspect]
     Active Substance: ENALAPRIL MALEATE
     Indication: HYPERTENSION
     Dosage: 5 MG, 1X/DAY
     Route: 048
     Dates: start: 201903, end: 2019
  2. ENALAPRIL MALEATE TABLETS USP 10 MG [Suspect]
     Active Substance: ENALAPRIL MALEATE
     Indication: HYPERTENSION
     Dosage: 10 MG, 1X/DAY
     Route: 048
     Dates: start: 2019, end: 2019
  3. ENALAPRIL MALEATE TABLETS USP 10 MG [Suspect]
     Active Substance: ENALAPRIL MALEATE
     Dosage: 20 MG, 1X/DAY
     Route: 048
     Dates: start: 2019

REACTIONS (4)
  - Drug ineffective [Not Recovered/Not Resolved]
  - Weight decreased [Recovered/Resolved]
  - Therapeutic response unexpected [Not Recovered/Not Resolved]
  - Therapeutic product effect incomplete [Not Recovered/Not Resolved]

NARRATIVE: CASE EVENT DATE: 2019
